FAERS Safety Report 9693448 (Version 6)
Quarter: 2015Q2

REPORT INFORMATION
  Report Type: Spontaneous
  Country: US (occurrence: US)
  Receive Date: 20131118
  Receipt Date: 20150524
  Transmission Date: 20150821
  Serious: Yes (Hospitalization, Other)
  Sender: FDA-Public Use
  Company Number: US-JNJFOC-20131105458

PATIENT
  Sex: Female
  Weight: 62.6 kg

DRUGS (7)
  1. DURAGESIC [Suspect]
     Active Substance: FENTANYL
     Indication: PAIN
     Route: 062
     Dates: start: 2003
  2. DURAGESIC [Suspect]
     Active Substance: FENTANYL
     Indication: PAIN
     Route: 062
  3. KLONOPIN [Concomitant]
     Active Substance: CLONAZEPAM
     Indication: SEIZURE
     Route: 048
     Dates: start: 2003
  4. DURAGESIC [Suspect]
     Active Substance: FENTANYL
     Indication: LYME DISEASE
     Route: 062
     Dates: start: 2003
  5. KLONOPIN [Concomitant]
     Active Substance: CLONAZEPAM
     Indication: PANIC ATTACK
     Route: 048
     Dates: start: 2003
  6. DURAGESIC [Suspect]
     Active Substance: FENTANYL
     Indication: LYME DISEASE
     Route: 062
  7. KLONOPIN [Concomitant]
     Active Substance: CLONAZEPAM
     Indication: PALPITATIONS
     Route: 048
     Dates: start: 2003

REACTIONS (16)
  - Inappropriate schedule of drug administration [Not Recovered/Not Resolved]
  - Depressed mood [Not Recovered/Not Resolved]
  - Morbid thoughts [Not Recovered/Not Resolved]
  - Hospitalisation [Unknown]
  - Balance disorder [Not Recovered/Not Resolved]
  - Drug dose omission [Unknown]
  - Fall [Recovered/Resolved]
  - Concussion [Recovered/Resolved]
  - Insomnia [Not Recovered/Not Resolved]
  - Wrong technique in drug usage process [Unknown]
  - Neck injury [Recovered/Resolved]
  - Product adhesion issue [Unknown]
  - Withdrawal syndrome [Not Recovered/Not Resolved]
  - Inadequate analgesia [Not Recovered/Not Resolved]
  - Headache [Not Recovered/Not Resolved]
  - Palpitations [Not Recovered/Not Resolved]

NARRATIVE: CASE EVENT DATE: 2013
